FAERS Safety Report 7632500 (Version 5)
Quarter: 2014Q1

REPORT INFORMATION
  Report Type: Report from Study
  Country: DZ (occurrence: DZ)
  Receive Date: 20101018
  Receipt Date: 20140227
  Transmission Date: 20141002
  Serious: Yes (Hospitalization)
  Sender: FDA-Public Use
  Company Number: PHHO2010DZ15506

PATIENT
  Age: 74 Year
  Sex: Male
  Weight: 75 kg

DRUGS (2)
  1. EVEROLIMUS [Suspect]
     Indication: RENAL CANCER METASTATIC
     Dosage: 10 MG, QD
     Route: 048
     Dates: start: 20100806
  2. INSULIN [Concomitant]
     Indication: HYPERGLYCAEMIA
     Dosage: 10 U, UNK
     Route: 058
     Dates: start: 20101006

REACTIONS (2)
  - Pulmonary embolism [Recovered/Resolved]
  - Chest pain [Recovered/Resolved]
